FAERS Safety Report 16898190 (Version 1)
Quarter: 2019Q4

REPORT INFORMATION
  Report Type: Spontaneous
  Country: US (occurrence: US)
  Receive Date: 20191009
  Receipt Date: 20191009
  Transmission Date: 20200122
  Serious: No
  Sender: FDA-Public Use
  Company Number: US-MYLANLABS-2019M1090535

PATIENT
  Age: 69 Year
  Sex: Female
  Weight: 68 kg

DRUGS (1)
  1. CLONIDINE TRANSDERMAL SYSTEM [Suspect]
     Active Substance: CLONIDINE
     Indication: HYPERTENSION
     Dosage: UNK UNK, QW
     Route: 062
     Dates: start: 20190523

REACTIONS (5)
  - Application site pruritus [Recovering/Resolving]
  - Application site urticaria [Recovering/Resolving]
  - Application site rash [Recovering/Resolving]
  - Blood pressure increased [Recovered/Resolved]
  - Application site pain [Recovering/Resolving]

NARRATIVE: CASE EVENT DATE: 201905
